FAERS Safety Report 10868747 (Version 1)
Quarter: 2015Q1

REPORT INFORMATION
  Report Type: Report from Study
  Country: US (occurrence: US)
  Receive Date: 20150225
  Receipt Date: 20150225
  Transmission Date: 20150721
  Serious: No
  Sender: FDA-Public Use
  Company Number: US-VERTEX PHARMACEUTICALS-2015-000515

PATIENT
  Age: 7 Year
  Sex: Female

DRUGS (1)
  1. IVACAFTOR [Suspect]
     Active Substance: IVACAFTOR
     Indication: CYSTIC FIBROSIS
     Dosage: UNK
     Route: 048
     Dates: start: 20131106

REACTIONS (3)
  - Nasal discharge discolouration [Unknown]
  - Influenza [Unknown]
  - Nasal congestion [Unknown]

NARRATIVE: CASE EVENT DATE: 201501
